FAERS Safety Report 26040310 (Version 1)
Quarter: 2025Q4

REPORT INFORMATION
  Report Type: Other
  Country: US (occurrence: US)
  Receive Date: 20251113
  Receipt Date: 20251113
  Transmission Date: 20260117
  Serious: Yes (Other)
  Sender: CREEKWOOD PHARMACEUTICALS LLC
  Company Number: US-Creekwood Pharmaceuticals LLC-2188452

PATIENT
  Age: 69 Year
  Sex: Female

DRUGS (3)
  1. HYDROXYCHLOROQUINE SULFATE [Suspect]
     Active Substance: HYDROXYCHLOROQUINE SULFATE
     Indication: Rheumatoid arthritis
  2. ABATACEPT [Concomitant]
     Active Substance: ABATACEPT
     Dates: start: 2016
  3. ADALIMUMAB [Concomitant]
     Active Substance: ADALIMUMAB
     Dates: end: 2016

REACTIONS (3)
  - Microvascular coronary artery disease [Recovering/Resolving]
  - Cardiomyopathy [Recovering/Resolving]
  - Toxicity to various agents [Recovering/Resolving]
